FAERS Safety Report 20735688 (Version 1)
Quarter: 2022Q2

REPORT INFORMATION
  Report Type: Spontaneous
  Country: US (occurrence: None)
  Receive Date: 20220421
  Receipt Date: 20220421
  Transmission Date: 20220721
  Serious: No
  Sender: FDA-Public Use
  Company Number: 2022A137277

PATIENT
  Sex: Female
  Weight: 90.7 kg

DRUGS (1)
  1. BUDESONIDE\FORMOTEROL\GLYCOPYRRONIUM [Suspect]
     Active Substance: BUDESONIDE\FORMOTEROL\GLYCOPYRRONIUM
     Indication: Asthma
     Dosage: 2 PUFFS TWO TIME A DAY
     Route: 055

REACTIONS (3)
  - Candida infection [Recovering/Resolving]
  - Wrong technique in product usage process [Unknown]
  - Device use issue [Not Recovered/Not Resolved]
